FAERS Safety Report 6737594-7 (Version None)
Quarter: 2010Q2

REPORT INFORMATION
  Report Type: 
  Country: None (occurrence: None)
  Receive Date: 20100524
  Receipt Date: 20100423
  Transmission Date: 20101027
  Serious: No
  Sender: FDA-Public Use
  Company Number: US-BAYER-201014700BCC

PATIENT
  Age: 70 Year
  Sex: Male
  Weight: 98 kg

DRUGS (3)
  1. ALEVE (CAPLET) [Suspect]
     Indication: BACK PAIN
     Dosage: TOTAL DAILY DOSE: 440 MG  UNIT DOSE: 220 MG
     Route: 048
     Dates: start: 20100412, end: 20100413
  2. OMEPRAZOLE [Concomitant]
     Route: 065
  3. INJECTION ANTI INFLAMMATORY [Concomitant]
     Route: 065
     Dates: start: 20100415, end: 20100415

REACTIONS (3)
  - BACK PAIN [None]
  - NAUSEA [None]
  - SOMNOLENCE [None]
